FAERS Safety Report 5232400-4 (Version None)
Quarter: 2007Q1

REPORT INFORMATION
  Report Type: 
  Country: None (occurrence: None)
  Receive Date: 20070207
  Receipt Date: 20070129
  Transmission Date: 20070707
  Serious: Yes (Other)
  Sender: FDA-Public Use
  Company Number: ES-JNJFOC-20070102631

PATIENT
  Age: 5 Decade
  Sex: Male

DRUGS (2)
  1. REMICADE [Suspect]
     Route: 042
  2. REMICADE [Suspect]
     Indication: SPONDYLITIS
     Dosage: 5-7MG/KG FOR APPROXIMATELY ONE YEAR
     Route: 042

REACTIONS (2)
  - PATHOGEN RESISTANCE [None]
  - TUBERCULOSIS [None]
